FAERS Safety Report 7637080-6 (Version None)
Quarter: 2011Q3

REPORT INFORMATION
  Report Type: 
  Country: None (occurrence: None)
  Receive Date: 20110726
  Receipt Date: 20110721
  Transmission Date: 20111222
  Serious: Yes (Hospitalization, Congenital Anomaly, Other)
  Sender: FDA-Public Use
  Company Number: RO-ABBOTT-10P-135-0687376-00

PATIENT

DRUGS (1)
  1. HUMIRA [Suspect]
     Indication: MATERNAL EXPOSURE DURING PREGNANCY
     Route: 064

REACTIONS (11)
  - MATERNAL EXPOSURE DURING PREGNANCY [None]
  - NEONATAL TACHYPNOEA [None]
  - NORMAL NEWBORN [None]
  - PATENT DUCTUS ARTERIOSUS [None]
  - JAUNDICE [None]
  - TACHYPNOEA [None]
  - NASAL DISORDER [None]
  - GRUNTING [None]
  - WEIGHT DECREASED [None]
  - ATRIAL SEPTAL DEFECT [None]
  - ACUTE RESPIRATORY DISTRESS SYNDROME [None]
